FAERS Safety Report 12277142 (Version 1)
Quarter: 2016Q2

REPORT INFORMATION
  Report Type: Spontaneous
  Country: None (occurrence: None)
  Receive Date: 20160415
  Receipt Date: 20160415
  Transmission Date: 20160815
  Serious: Yes (Other)
  Sender: FDA-Public Use
  Company Number: None

PATIENT
  Age: 28 Year
  Sex: Female
  Weight: 92.99 kg

DRUGS (1)
  1. MIRENA [Suspect]
     Active Substance: LEVONORGESTREL
     Indication: CONTRACEPTION
     Route: 067
     Dates: start: 20120217, end: 20150903

REACTIONS (16)
  - Migraine [None]
  - Pelvic pain [None]
  - Alopecia [None]
  - Pain in extremity [None]
  - Anxiety [None]
  - Arthralgia [None]
  - Weight increased [None]
  - Oligomenorrhoea [None]
  - Panic attack [None]
  - Mood swings [None]
  - Fatigue [None]
  - Depressed level of consciousness [None]
  - Acne [None]
  - Rosacea [None]
  - Depression [None]
  - Anger [None]

NARRATIVE: CASE EVENT DATE: 20120217
